FAERS Safety Report 5995737-7 (Version None)
Quarter: 2008Q4

REPORT INFORMATION
  Report Type: 
  Country: None (occurrence: None)
  Receive Date: 20081212
  Receipt Date: 20081204
  Transmission Date: 20090506
  Serious: Yes (Hospitalization, Other)
  Sender: FDA-Public Use
  Company Number: US-PFIZER INC-2008076161

PATIENT
  Sex: Male
  Weight: 158.76 kg

DRUGS (12)
  1. BLINDED *PLACEBO [Suspect]
     Indication: OSTEOARTHRITIS
     Dosage: UNK
     Route: 048
     Dates: start: 20071023, end: 20080724
  2. CELECOXIB [Suspect]
     Indication: OSTEOARTHRITIS
     Dosage: UNK
     Route: 048
     Dates: start: 20071023, end: 20080724
  3. BLINDED IBUPROFEN [Suspect]
     Indication: OSTEOARTHRITIS
     Dosage: UNK
     Route: 048
     Dates: start: 20071023, end: 20080724
  4. BLINDED NAPROXEN [Suspect]
     Indication: OSTEOARTHRITIS
     Dosage: UNK
     Route: 048
     Dates: start: 20071023, end: 20080724
  5. NEXIUM [Concomitant]
     Route: 048
     Dates: start: 20070912
  6. LISINOPRIL [Concomitant]
     Route: 048
     Dates: start: 20041112
  7. METHOCARBAMOL [Concomitant]
     Route: 048
     Dates: start: 20050525
  8. HYDROCODONE BITARTRATE [Concomitant]
     Route: 048
     Dates: start: 20050525
  9. APAP TAB [Concomitant]
     Route: 048
     Dates: start: 20051014
  10. FISH OIL [Concomitant]
     Route: 048
     Dates: start: 20071009
  11. VITAMINS [Concomitant]
     Route: 048
     Dates: start: 20051014
  12. SAW PALMETTO [Concomitant]
     Route: 048
     Dates: start: 20060322

REACTIONS (1)
  - OBESITY [None]
